FAERS Safety Report 8192770-4 (Version None)
Quarter: 2012Q1

REPORT INFORMATION
  Report Type: 
  Country: None (occurrence: None)
  Receive Date: 20120308
  Receipt Date: 20120302
  Transmission Date: 20120608
  Serious: Yes (Other)
  Sender: FDA-Public Use
  Company Number: US-AMGEN-USASP2012014148

PATIENT
  Sex: Male

DRUGS (1)
  1. PROCRIT [Suspect]
     Indication: RENAL FAILURE CHRONIC
     Dosage: UNK

REACTIONS (1)
  - HEAD AND NECK CANCER [None]
